FAERS Safety Report 23760686 (Version 5)
Quarter: 2024Q2

REPORT INFORMATION
  Report Type: Spontaneous
  Country: JP (occurrence: JP)
  Receive Date: 20240419
  Receipt Date: 20240619
  Transmission Date: 20240715
  Serious: Yes (Other)
  Sender: FDA-Public Use
  Company Number: JP-JNJFOC-20240432443

PATIENT
  Age: 55 Year
  Sex: Female
  Weight: 44.6 kg

DRUGS (20)
  1. OPSUMIT [Suspect]
     Active Substance: MACITENTAN
     Indication: Duodenal ulcer
     Dosage: AFTER BREAKFAST
     Route: 048
     Dates: start: 20240112, end: 20240207
  2. OPSUMIT [Suspect]
     Active Substance: MACITENTAN
     Indication: Skin ulcer
  3. OPSUMIT [Suspect]
     Active Substance: MACITENTAN
     Indication: Raynaud^s phenomenon
  4. UPTRAVI [Suspect]
     Active Substance: SELEXIPAG
     Indication: Product used for unknown indication
     Dosage: AFTER BREAKFAST AND DINNER
     Route: 048
  5. UPTRAVI [Suspect]
     Active Substance: SELEXIPAG
     Route: 048
  6. ADCIRCA [Concomitant]
     Active Substance: TADALAFIL
     Dosage: AFTER BREAKFAST
     Route: 048
  7. ADCIRCA [Concomitant]
     Active Substance: TADALAFIL
     Route: 048
  8. TOKISHIGYAKUKAGOSHUYUSHOKYOTO [Concomitant]
     Dosage: BEFORE EACH MEAL
     Route: 048
  9. AMLODIPINE BESYLATE [Concomitant]
     Active Substance: AMLODIPINE BESYLATE
     Dosage: AFTER BREAKFAST
     Route: 048
  10. CALONAL [Concomitant]
     Active Substance: ACETAMINOPHEN
     Dosage: AFTER EACH MEAL AND AT BEDTIME
     Route: 048
  11. CALONAL [Concomitant]
     Active Substance: ACETAMINOPHEN
  12. LANSOPRAZOLE [Concomitant]
     Active Substance: LANSOPRAZOLE
     Dosage: AFTER BREAKFAST
     Route: 048
  13. BERAPROST SODIUM [Concomitant]
     Active Substance: BERAPROST SODIUM
     Dosage: AFTER EACH MEAL
     Route: 048
  14. BERAPROST SODIUM [Concomitant]
     Active Substance: BERAPROST SODIUM
  15. ICOSAPENT ETHYL [Concomitant]
     Active Substance: ICOSAPENT ETHYL
     Dosage: AFTER BREAKFAST AND DINNER
     Route: 048
  16. ICOSAPENT ETHYL [Concomitant]
     Active Substance: ICOSAPENT ETHYL
  17. SARPOGRELATE HYDROCHLORIDE [Concomitant]
     Active Substance: SARPOGRELATE HYDROCHLORIDE
     Dosage: AFTER EACH MEAL
     Route: 048
  18. SARPOGRELATE HYDROCHLORIDE [Concomitant]
     Active Substance: SARPOGRELATE HYDROCHLORIDE
  19. ESFLURBIPROFEN\HERBALS [Concomitant]
     Active Substance: ESFLURBIPROFEN\HERBALS
     Dosage: 1 PIECE PER TIME, WHEN IT HURTS
     Route: 062
     Dates: start: 20240129
  20. ESFLURBIPROFEN\HERBALS [Concomitant]
     Active Substance: ESFLURBIPROFEN\HERBALS

REACTIONS (2)
  - Pancytopenia [Recovered/Resolved]
  - Off label use [Unknown]

NARRATIVE: CASE EVENT DATE: 20240112
